FAERS Safety Report 8968095 (Version 1)
Quarter: 2012Q4

REPORT INFORMATION
  Report Type: 
  Country: US (occurrence: US)
  Receive Date: 20121218
  Receipt Date: 20121218
  Transmission Date: 20130627
  Serious: Yes (Other)
  Sender: FDA-Public Use
  Company Number: US-PFIZER INC-2012317751

PATIENT
  Age: 73 Year
  Sex: Male
  Weight: 102 kg

DRUGS (2)
  1. SUTENT [Suspect]
     Indication: RENAL CELL CANCER
     Dosage: 50 mg, daily
     Dates: start: 2012
  2. LEVOTHYROXINE [Concomitant]
     Indication: THYROID DISORDER
     Dosage: 0.05 mg, daily

REACTIONS (4)
  - Cerebrovascular accident [Unknown]
  - Stomatitis [Recovering/Resolving]
  - Sinusitis [Not Recovered/Not Resolved]
  - Rhinitis [Not Recovered/Not Resolved]
